FAERS Safety Report 4590374-3 (Version None)
Quarter: 2005Q1

REPORT INFORMATION
  Report Type: 
  Country: None (occurrence: None)
  Receive Date: 20050217
  Receipt Date: 20050204
  Transmission Date: 20050727
  Serious: Yes (Other)
  Sender: FDA-Public Use
  Company Number: 05021460

PATIENT
  Age: 60 Year
  Sex: Male

DRUGS (2)
  1. KETOCONAZOLE [Suspect]
     Indication: HERPES ZOSTER
     Dosage: TOPICAL
     Route: 061
  2. TOBTRADEX [Concomitant]

REACTIONS (5)
  - ACCIDENTAL EXPOSURE [None]
  - EYE IRRITATION [None]
  - PHOTOSENSITIVITY REACTION [None]
  - VISION BLURRED [None]
  - VISUAL DISTURBANCE [None]
